FAERS Safety Report 8176775-5 (Version None)
Quarter: 2012Q1

REPORT INFORMATION
  Report Type: 
  Country: None (occurrence: None)
  Receive Date: 20120301
  Receipt Date: 20120224
  Transmission Date: 20120608
  Serious: Yes (Hospitalization, Other)
  Sender: FDA-Public Use
  Company Number: IE-B.I. PHARMACEUTICALS,INC./RIDGEFIELD-2012-UK-00302UK

PATIENT
  Age: 82 Year
  Sex: Female

DRUGS (1)
  1. PRADAXA [Suspect]
     Dosage: 220 MG

REACTIONS (5)
  - INTESTINAL HAEMORRHAGE [None]
  - LOWER RESPIRATORY TRACT INFECTION [None]
  - RENAL IMPAIRMENT [None]
  - DEHYDRATION [None]
  - HYPOTENSION [None]
